FAERS Safety Report 5384287-7 (Version None)
Quarter: 2007Q3

REPORT INFORMATION
  Report Type: 
  Country: None (occurrence: None)
  Receive Date: 20070710
  Receipt Date: 20060703
  Transmission Date: 20080115
  Serious: Yes (Hospitalization)
  Sender: FDA-Public Use
  Company Number: 2006-01678

PATIENT
  Age: 45 Year
  Sex: Male
  Weight: 94 kg

DRUGS (2)
  1. VELCADE [Suspect]
     Indication: MULTIPLE MYELOMA
     Dosage: 2.60 MG, IV BOLUS
     Route: 040
     Dates: start: 20060612, end: 20060626
  2. FUROSEMIDE [Concomitant]

REACTIONS (2)
  - EJECTION FRACTION DECREASED [None]
  - PLEURAL EFFUSION [None]
